FAERS Safety Report 4548473-8 (Version None)
Quarter: 2005Q1

REPORT INFORMATION
  Report Type: 
  Country: None (occurrence: None)
  Receive Date: 20050106
  Receipt Date: 20041223
  Transmission Date: 20050727
  Serious: Yes (Other)
  Sender: FDA-Public Use
  Company Number: 2004-0007877

PATIENT
  Age: 42 Day
  Sex: Female
  Weight: 3.2 kg

DRUGS (1)
  1. TENOFOVIR DISOPROXIL FUMARATE (TENOFOVIR DISOPROXIL FUMARATE) [Suspect]
     Indication: PROPHYLAXIS AGAINST HIV INFECTION
     Dosage: 600 MG, 1 IN 1 ONCE
     Dates: start: 20041007, end: 20041007

REACTIONS (4)
  - BLOOD CALCIUM INCREASED [None]
  - BLOOD POTASSIUM INCREASED [None]
  - DRUG EXPOSURE DURING PREGNANCY [None]
  - HAEMOLYSIS NEONATAL [None]
